FAERS Safety Report 24778996 (Version 1)
Quarter: 2024Q4

REPORT INFORMATION
  Report Type: Spontaneous
  Country: JP (occurrence: JP)
  Receive Date: 20241226
  Receipt Date: 20241226
  Transmission Date: 20250114
  Serious: Yes (Hospitalization)
  Sender: ELI LILLY AND COMPANY
  Company Number: JP-ELI_LILLY_AND_COMPANY-JP202412014963

PATIENT
  Age: 65 Year
  Sex: Male
  Weight: 61.4 kg

DRUGS (10)
  1. JAYPIRCA [Suspect]
     Active Substance: PIRTOBRUTINIB
     Indication: Mantle cell lymphoma recurrent
     Dosage: 200 MG, UNKNOWN
     Route: 048
  2. IBRUTINIB [Concomitant]
     Active Substance: IBRUTINIB
     Indication: Mantle cell lymphoma
  3. LANSOPRAZOLE [Concomitant]
     Active Substance: LANSOPRAZOLE
     Dosage: UNK MG
  4. PREGABALIN [Concomitant]
     Active Substance: PREGABALIN
     Dosage: UNK MG
  5. FAMOTIDINE [Concomitant]
     Active Substance: FAMOTIDINE
     Dosage: UNK MG
  6. ATOVAQUONE [Concomitant]
     Active Substance: ATOVAQUONE
     Dosage: UNK MG
  7. GOREISAN [ALISMA PLANTAGO-AQUATICA SUBSP. ORI [Concomitant]
     Dosage: UNK G
  8. VALACYCLOVIR HYDROCHLORIDE [Concomitant]
     Active Substance: VALACYCLOVIR HYDROCHLORIDE
     Dosage: UNK MG
  9. LORATADINE [Concomitant]
     Active Substance: LORATADINE
     Dosage: UNK MG
  10. MAGNESIUM OXIDE [Concomitant]
     Active Substance: MAGNESIUM OXIDE
     Dosage: UNK MG

REACTIONS (4)
  - Lymphocyte morphology abnormal [Recovered/Resolved]
  - Atypical lymphocytes increased [Recovered/Resolved]
  - White blood cell count increased [Recovered/Resolved]
  - Pyrexia [Recovered/Resolved]
